FAERS Safety Report 6279898-0 (Version None)
Quarter: 2009Q3

REPORT INFORMATION
  Report Type: 
  Country: None (occurrence: None)
  Receive Date: 20090723
  Receipt Date: 20090720
  Transmission Date: 20100115
  Serious: Yes (Death, Other)
  Sender: FDA-Public Use
  Company Number: PHEH2009US07024

PATIENT
  Sex: Male
  Weight: 100 kg

DRUGS (10)
  1. EXJADE [Suspect]
     Indication: IRON OVERLOAD
     Dosage: 2 GM, QD
     Route: 048
     Dates: start: 20090201, end: 20090301
  2. EXJADE [Suspect]
     Dosage: 2 GM, QD
     Route: 048
     Dates: start: 20090501
  3. ANTIARRHYTHMICS, CLASS I AND III [Concomitant]
  4. INSULIN [Concomitant]
  5. LASIX [Concomitant]
  6. HYDRALAZINE HCL [Concomitant]
  7. ASPIRIN [Concomitant]
  8. CARVEDILOL [Concomitant]
  9. PROCRIT                            /00909301/ [Concomitant]
  10. TRANSFUSIONS [Concomitant]

REACTIONS (6)
  - CARDIAC ARREST [None]
  - DYSPNOEA [None]
  - FATIGUE [None]
  - HAEMOGLOBIN DECREASED [None]
  - PLATELET COUNT DECREASED [None]
  - SERUM FERRITIN INCREASED [None]
